FAERS Safety Report 23754347 (Version 1)
Quarter: 2024Q2

REPORT INFORMATION
  Report Type: Spontaneous
  Country: US (occurrence: US)
  Receive Date: 20240418
  Receipt Date: 20240418
  Transmission Date: 20240716
  Serious: No
  Sender: FDA-Public Use
  Company Number: US-ABBVIE-5719101

PATIENT

DRUGS (1)
  1. LUMIGAN [Suspect]
     Active Substance: BIMATOPROST
     Indication: Product used for unknown indication
     Route: 047

REACTIONS (4)
  - Eye irritation [Recovering/Resolving]
  - Dry eye [Recovering/Resolving]
  - Superficial injury of eye [Recovering/Resolving]
  - Foreign body sensation in eyes [Recovering/Resolving]
